FAERS Safety Report 5604525-2 (Version None)
Quarter: 2008Q1

REPORT INFORMATION
  Report Type: 
  Country: None (occurrence: None)
  Receive Date: 20080123
  Receipt Date: 20080123
  Transmission Date: 20080703
  Serious: Yes (Death)
  Sender: FDA-Public Use
  Company Number: None

PATIENT
  Age: 18 Year
  Sex: Male
  Weight: 61.2356 kg

DRUGS (1)
  1. METHADONE HCL [Suspect]
     Dates: start: 20031227, end: 20031227

REACTIONS (2)
  - ACCIDENTAL EXPOSURE [None]
  - VOMITING [None]
